FAERS Safety Report 13381257 (Version 1)
Quarter: 2017Q1

REPORT INFORMATION
  Report Type: Spontaneous
  Country: FR (occurrence: FR)
  Receive Date: 20170329
  Receipt Date: 20170329
  Transmission Date: 20170429
  Serious: Yes (Death)
  Sender: FDA-Public Use
  Company Number: FR-009507513-1703FRA009552

PATIENT

DRUGS (3)
  1. ISENTRESS [Suspect]
     Active Substance: RALTEGRAVIR POTASSIUM
     Indication: HIV INFECTION
     Dosage: 1 DF, BID
     Route: 064
     Dates: start: 20161202
  2. TRUVADA [Suspect]
     Active Substance: EMTRICITABINE\TENOFOVIR DISOPROXIL FUMARATE
     Indication: HIV INFECTION
     Dosage: 1 DF, QD STRENGTH: 200MG/245MG
     Route: 064
     Dates: start: 20161202
  3. EVIPLERA [Suspect]
     Active Substance: EMTRICITABINE\RILPIVIRINE\TENOFOVIR DISOPROXIL FUMARATE
     Indication: HIV INFECTION
     Dosage: 1 DF, QD . STRENGTH: 200MG/25MG/245MG
     Route: 064
     Dates: start: 20161020, end: 20161202

REACTIONS (1)
  - Abortion spontaneous [Fatal]

NARRATIVE: CASE EVENT DATE: 20170104
